FAERS Safety Report 4340006-4 (Version None)
Quarter: 2004Q2

REPORT INFORMATION
  Report Type: 
  Country: None (occurrence: None)
  Receive Date: 20040416
  Receipt Date: 20021014
  Transmission Date: 20050107
  Serious: Yes (Disabling, Other)
  Sender: FDA-Public Use
  Company Number: US-MERCK-0210USA01484

PATIENT
  Age: 34 Year
  Sex: Female
  Weight: 84 kg

DRUGS (7)
  1. [COMPOSITION UNSPECIFIED] [Concomitant]
     Route: 065
  2. BAYCOL [Concomitant]
     Indication: BLOOD CHOLESTEROL INCREASED
     Route: 065
  3. ACTOS [Concomitant]
     Indication: DIABETES MELLITUS NON-INSULIN-DEPENDENT
     Route: 065
  4. VIOXX [Suspect]
     Indication: ARTHRALGIA
     Route: 048
     Dates: start: 20010129, end: 20010201
  5. VIOXX [Suspect]
     Route: 048
     Dates: start: 20000901, end: 20001101
  6. VIOXX [Suspect]
     Indication: PAIN
     Route: 048
     Dates: start: 20010129, end: 20010201
  7. VIOXX [Suspect]
     Route: 048
     Dates: start: 20000901, end: 20001101

REACTIONS (27)
  - ADVERSE EVENT [None]
  - ANGINA PECTORIS [None]
  - BACK PAIN [None]
  - BLOOD TRIGLYCERIDES INCREASED [None]
  - CHEST PAIN [None]
  - CHROMATURIA [None]
  - CHRONIC FATIGUE SYNDROME [None]
  - CONVULSION [None]
  - DEPRESSION [None]
  - DIFFICULTY IN WALKING [None]
  - DISTURBANCE IN ATTENTION [None]
  - DIZZINESS [None]
  - DRUG HYPERSENSITIVITY [None]
  - EMOTIONAL DISTRESS [None]
  - GENERAL PHYSICAL HEALTH DETERIORATION [None]
  - HYPERTENSION [None]
  - INJURY [None]
  - INSOMNIA [None]
  - MENTAL STATUS CHANGES [None]
  - MOOD ALTERED [None]
  - MUSCLE ATROPHY [None]
  - MUSCULOSKELETAL STIFFNESS [None]
  - OEDEMA [None]
  - OEDEMA PERIPHERAL [None]
  - PAIN IN EXTREMITY [None]
  - SYNCOPE [None]
  - WEIGHT DECREASED [None]
